FAERS Safety Report 17263528 (Version 1)
Quarter: 2020Q1

REPORT INFORMATION
  Report Type: Spontaneous
  Country: US (occurrence: US)
  Receive Date: 20200113
  Receipt Date: 20200113
  Transmission Date: 20200409
  Serious: No
  Sender: FDA-Public Use
  Company Number: None

PATIENT
  Age: 55 Year
  Sex: Female
  Weight: 68.85 kg

DRUGS (1)
  1. CEFDINIR 300 MG CAPSULE [Suspect]
     Active Substance: CEFDINIR
     Indication: RESPIRATORY TRACT INFECTION BACTERIAL
     Dosage: ?          QUANTITY:1 CAPSULE(S);?
     Route: 048
     Dates: start: 20200108, end: 20200108

REACTIONS (4)
  - Hyperhidrosis [None]
  - Abdominal discomfort [None]
  - Diarrhoea [None]
  - Nausea [None]

NARRATIVE: CASE EVENT DATE: 20200108
